FAERS Safety Report 14099624 (Version 2)
Quarter: 2017Q4

REPORT INFORMATION
  Report Type: Spontaneous
  Country: US (occurrence: US)
  Receive Date: 20171017
  Receipt Date: 20171025
  Transmission Date: 20180321
  Serious: No
  Sender: FDA-Public Use
  Company Number: US-ELI_LILLY_AND_COMPANY-US201710005942

PATIENT
  Age: 78 Year
  Sex: Female

DRUGS (2)
  1. GLIMEPIRIDE. [Concomitant]
     Active Substance: GLIMEPIRIDE
     Dosage: UNK, UNKNOWN
     Route: 065
  2. BASAGLAR [Suspect]
     Active Substance: INSULIN GLARGINE
     Indication: TYPE 2 DIABETES MELLITUS
     Dosage: 10 IU, UNKNOWN
     Route: 058
     Dates: start: 201705

REACTIONS (2)
  - Blood glucose increased [Unknown]
  - Underdose [Unknown]

NARRATIVE: CASE EVENT DATE: 20171016
